FAERS Safety Report 6764220-3 (Version None)
Quarter: 2010Q2

REPORT INFORMATION
  Report Type: 
  Country: None (occurrence: None)
  Receive Date: 20100610
  Receipt Date: 20100603
  Transmission Date: 20101027
  Serious: Yes (Hospitalization)
  Sender: FDA-Public Use
  Company Number: B0659359A

PATIENT
  Age: 75 Year
  Sex: Female

DRUGS (1)
  1. VALTREX [Suspect]
     Indication: DRUG USE FOR UNKNOWN INDICATION
     Dosage: 3000MG PER DAY
     Route: 048
     Dates: start: 20100528

REACTIONS (1)
  - RENAL IMPAIRMENT [None]
